FAERS Safety Report 6240089-0 (Version None)
Quarter: 2009Q2

REPORT INFORMATION
  Report Type: 
  Country: None (occurrence: None)
  Receive Date: 20090617
  Receipt Date: 20080219
  Transmission Date: 20091009
  Serious: No
  Sender: FDA-Public Use
  Company Number: 272450

PATIENT
  Age: 54 Year
  Sex: Female

DRUGS (3)
  1. LEVEMIR [Suspect]
     Indication: TYPE 1 DIABETES MELLITUS
     Dosage: SUBCUTANEOUS
     Route: 058
     Dates: start: 20080101
  2. NEXIUM [Concomitant]
  3. ZANTAC 150 [Concomitant]

REACTIONS (1)
  - DYSPEPSIA [None]
